FAERS Safety Report 9152466 (Version 2)
Quarter: 2013Q2

REPORT INFORMATION
  Report Type: Spontaneous
  Country: US (occurrence: US)
  Receive Date: 20130308
  Receipt Date: 20130523
  Transmission Date: 20140414
  Serious: Yes (Death)
  Sender: FDA-Public Use
  Company Number: US-CELGENEUS-163-21880-13030808

PATIENT
  Age: 82 Year
  Sex: Female

DRUGS (13)
  1. REVLIMID [Suspect]
     Indication: MYELODYSPLASTIC SYNDROME
     Dosage: 2.5 MILLIGRAM
     Route: 048
     Dates: start: 20121231, end: 20130225
  2. PROCRIT [Concomitant]
     Indication: PRODUCT USED FOR UNKNOWN INDICATION
     Route: 065
  3. DANAZOL [Concomitant]
     Indication: MYELODYSPLASTIC SYNDROME
     Dosage: 200 MILLIGRAM
     Route: 065
     Dates: start: 20130121
  4. LEXAPRO [Concomitant]
     Indication: DEPRESSION
     Dosage: 10 MILLIGRAM
     Route: 065
     Dates: start: 20121204
  5. OMEPRAZOLE [Concomitant]
     Indication: PRODUCT USED FOR UNKNOWN INDICATION
     Dosage: 20 MILLIGRAM
     Route: 065
     Dates: start: 20130207
  6. PREDNISONE [Concomitant]
     Indication: PAIN
     Dosage: 20 MILLIGRAM
     Route: 065
     Dates: start: 20130207
  7. ATENOLOL [Concomitant]
     Indication: PRODUCT USED FOR UNKNOWN INDICATION
     Dosage: 25 MILLIGRAM
     Route: 065
  8. LEVOTHYROXINE [Concomitant]
     Indication: PRODUCT USED FOR UNKNOWN INDICATION
     Dosage: 88 MICROGRAM
     Route: 065
  9. POTASSIUM CHLORIDE [Concomitant]
     Indication: PRODUCT USED FOR UNKNOWN INDICATION
     Dosage: 8 MILLIEQUIVALENTS
     Route: 065
  10. OXYPHENCYCLIMINE [Concomitant]
     Indication: PRODUCT USED FOR UNKNOWN INDICATION
     Dosage: 10 MILLIGRAM
     Route: 065
  11. AMLODIPINE [Concomitant]
     Indication: PRODUCT USED FOR UNKNOWN INDICATION
     Dosage: 5 MILLIGRAM
     Route: 065
  12. ALLOPURINOL [Concomitant]
     Indication: PRODUCT USED FOR UNKNOWN INDICATION
     Dosage: 100 MILLIGRAM
     Route: 065
  13. MAXZIDE [Concomitant]
     Indication: PRODUCT USED FOR UNKNOWN INDICATION
     Dosage: 12.5 MILLIGRAM
     Route: 065

REACTIONS (2)
  - Thrombosis [Fatal]
  - Aneurysm [Fatal]
